FAERS Safety Report 18205061 (Version 11)
Quarter: 2022Q3

REPORT INFORMATION
  Report Type: Spontaneous
  Country: CA (occurrence: CA)
  Receive Date: 20200827
  Receipt Date: 20220928
  Transmission Date: 20221027
  Serious: Yes (Other)
  Sender: FDA-Public Use
  Company Number: CA-CELLTRION INC.-2018CA022450

PATIENT

DRUGS (26)
  1. INFLECTRA [Suspect]
     Active Substance: INFLIXIMAB-DYYB
     Indication: Crohn^s disease
     Dosage: 5 MG/KG, AT 0, 2, 6 THEN EVERY 8 WEEKS
     Route: 042
     Dates: start: 20180829
  2. INFLECTRA [Suspect]
     Active Substance: INFLIXIMAB-DYYB
     Dosage: 5 MG/KG, AT 0, 2, 6 THEN EVERY 8 WEEKS
     Route: 042
     Dates: start: 20180829, end: 20181205
  3. INFLECTRA [Suspect]
     Active Substance: INFLIXIMAB-DYYB
     Dosage: 225 MG
     Route: 042
     Dates: start: 20181010
  4. INFLECTRA [Suspect]
     Active Substance: INFLIXIMAB-DYYB
     Dosage: 5 MG/KG, AT 0, 2, 6 THEN EVERY 8 WEEKS
     Route: 042
     Dates: start: 20181205
  5. INFLECTRA [Suspect]
     Active Substance: INFLIXIMAB-DYYB
     Dosage: 325 MG, EVERY 8 WEEKS
     Route: 042
     Dates: start: 20190130
  6. INFLECTRA [Suspect]
     Active Substance: INFLIXIMAB-DYYB
     Dosage: 325 MG, EVERY 8 WEEKS
     Route: 042
     Dates: start: 20190130, end: 20190327
  7. INFLECTRA [Suspect]
     Active Substance: INFLIXIMAB-DYYB
     Dosage: 425 MG, EVERY 8 WEEKS
     Route: 042
     Dates: start: 20190322, end: 20210819
  8. INFLECTRA [Suspect]
     Active Substance: INFLIXIMAB-DYYB
     Dosage: 325 MG, EVERY 8 WEEKS
     Route: 042
     Dates: start: 20190327
  9. INFLECTRA [Suspect]
     Active Substance: INFLIXIMAB-DYYB
     Dosage: 425 MG, EVERY 8 WEEKS
     Route: 042
     Dates: start: 20190522
  10. INFLECTRA [Suspect]
     Active Substance: INFLIXIMAB-DYYB
     Dosage: 425 MG, EVERY 8 WEEKS
     Route: 042
     Dates: start: 20190717
  11. INFLECTRA [Suspect]
     Active Substance: INFLIXIMAB-DYYB
     Dosage: 425 MG, EVERY 8 WEEKS
     Route: 042
     Dates: start: 20190927
  12. INFLECTRA [Suspect]
     Active Substance: INFLIXIMAB-DYYB
     Dosage: 425 MG, EVERY 8 WEEKS
     Route: 042
     Dates: start: 20191129
  13. INFLECTRA [Suspect]
     Active Substance: INFLIXIMAB-DYYB
     Dosage: 425 MG, EVERY 8 WEEKS
     Route: 042
     Dates: start: 20200121
  14. INFLECTRA [Suspect]
     Active Substance: INFLIXIMAB-DYYB
     Dosage: 425 MG, EVERY 8 WEEKS
     Route: 042
     Dates: start: 20200707
  15. INFLECTRA [Suspect]
     Active Substance: INFLIXIMAB-DYYB
     Dosage: 425 MG, EVERY 8 WEEKS
     Route: 042
     Dates: start: 20200901
  16. INFLECTRA [Suspect]
     Active Substance: INFLIXIMAB-DYYB
     Dosage: 425 MG, EVERY 8 WEEKS
     Route: 042
     Dates: start: 20201029
  17. INFLECTRA [Suspect]
     Active Substance: INFLIXIMAB-DYYB
     Dosage: 425 MG, EVERY 8 WEEKS
     Route: 042
     Dates: start: 20210218
  18. INFLECTRA [Suspect]
     Active Substance: INFLIXIMAB-DYYB
     Dosage: 425 MG, EVERY 8 WEEKS
     Route: 042
     Dates: start: 20210618
  19. INFLECTRA [Suspect]
     Active Substance: INFLIXIMAB-DYYB
     Dosage: 500 MG, EVERY 8 WEEKS
     Route: 042
     Dates: start: 20211015
  20. INFLECTRA [Suspect]
     Active Substance: INFLIXIMAB-DYYB
     Dosage: 500 MG, EVERY 8 WEEKS
     Route: 042
     Dates: start: 20211210
  21. INFLECTRA [Suspect]
     Active Substance: INFLIXIMAB-DYYB
     Dosage: 500 MG, EVERY 8 WEEKS
     Route: 042
     Dates: start: 20220204
  22. INFLECTRA [Suspect]
     Active Substance: INFLIXIMAB-DYYB
     Dosage: 500 MG, EVERY 8 WEEKS
     Route: 042
     Dates: start: 20220527
  23. INFLECTRA [Suspect]
     Active Substance: INFLIXIMAB-DYYB
     Dosage: 500 MG, EVERY 8 WEEKS
     Route: 042
     Dates: start: 20220722
  24. INFLECTRA [Suspect]
     Active Substance: INFLIXIMAB-DYYB
     Dosage: 500 MG, EVERY 8 WEEKS
     Route: 042
     Dates: start: 20220916
  25. METHOTREXATE [Concomitant]
     Active Substance: METHOTREXATE
     Dosage: 1 DF
     Route: 065
     Dates: start: 20180616
  26. METHOTREXATE [Concomitant]
     Active Substance: METHOTREXATE
     Dosage: DOSAGE INFORMATION NOT AVAILABLE
     Route: 065
     Dates: start: 20180716

REACTIONS (19)
  - Diarrhoea [Unknown]
  - Mobility decreased [Unknown]
  - Off label use [Unknown]
  - Incorrect dose administered [Unknown]
  - Intentional product use issue [Unknown]
  - Inappropriate schedule of product administration [Unknown]
  - Blood pressure fluctuation [Unknown]
  - Poor venous access [Not Recovered/Not Resolved]
  - Fatigue [Not Recovered/Not Resolved]
  - Asthenia [Unknown]
  - Weight decreased [Unknown]
  - Dyspnoea exertional [Unknown]
  - Tremor [Unknown]
  - Contusion [Unknown]
  - Anxiety [Unknown]
  - Catheter site erythema [Unknown]
  - Catheter site pain [Unknown]
  - Catheter site swelling [Unknown]
  - Condition aggravated [Recovering/Resolving]

NARRATIVE: CASE EVENT DATE: 20180101
